FAERS Safety Report 15794082 (Version 2)
Quarter: 2019Q1

REPORT INFORMATION
  Report Type: Spontaneous
  Country: US (occurrence: US)
  Receive Date: 20190107
  Receipt Date: 20190311
  Transmission Date: 20190417
  Serious: Yes (Other)
  Sender: FDA-Public Use
  Company Number: US-RECKITT BENCKISER HEALTHCARE INT LIMITED-RB-80152-2019

PATIENT
  Sex: Male

DRUGS (3)
  1. UREA. [Suspect]
     Active Substance: UREA
     Indication: PRODUCT USED FOR UNKNOWN INDICATION
     Dosage: UNK
     Route: 065
  2. SALICYLIC ACID. [Suspect]
     Active Substance: SALICYLIC ACID
     Indication: PRODUCT USED FOR UNKNOWN INDICATION
     Dosage: UNK
     Route: 065
  3. TRETINOIN. [Suspect]
     Active Substance: TRETINOIN
     Indication: PRODUCT USED FOR UNKNOWN INDICATION
     Dosage: UNK
     Route: 065

REACTIONS (7)
  - Skin hyperpigmentation [Recovered/Resolved]
  - Secretion discharge [Recovered/Resolved]
  - Papule [Recovered/Resolved]
  - Hyperkeratosis [Recovered/Resolved]
  - Pain [Recovering/Resolving]
  - Skin plaque [Recovered/Resolved]
  - Drug ineffective [Not Recovered/Not Resolved]
